FAERS Safety Report 6648322-8 (Version None)
Quarter: 2010Q1

REPORT INFORMATION
  Report Type: 
  Country: None (occurrence: None)
  Receive Date: 20100324
  Receipt Date: 20100314
  Transmission Date: 20100710
  Serious: Yes (Hospitalization)
  Sender: FDA-Public Use
  Company Number: GB-ROCHE-691204

PATIENT
  Sex: Female

DRUGS (1)
  1. LARIAM [Suspect]
     Indication: MALARIA PROPHYLAXIS
     Dosage: INDICATION REPORTED AS ANTI MALARIA
     Route: 065

REACTIONS (7)
  - ABDOMINAL DISTENSION [None]
  - FACE INJURY [None]
  - ILL-DEFINED DISORDER [None]
  - LIMB INJURY [None]
  - MENTAL DISORDER [None]
  - PROTEINURIA [None]
  - RENAL DISORDER [None]
